FAERS Safety Report 8158676 (Version 5)
Quarter: 2013Q3

REPORT INFORMATION
  Report Type: Spontaneous
  Country: US (occurrence: US)
  Receive Date: 20110927
  Receipt Date: 20130911
  Transmission Date: 20140515
  Serious: Yes (Hospitalization)
  Sender: FDA-Public Use
  Company Number: US-GLAXOSMITHKLINE-A0915648A

PATIENT
  Age: 51 Year
  Sex: Male
  Weight: 139.1 kg

DRUGS (1)
  1. AVANDIA [Suspect]
     Indication: DIABETES MELLITUS
     Dosage: 4MG TWICE PER DAY
     Route: 048
     Dates: start: 200305, end: 200712

REACTIONS (7)
  - Myocardial infarction [Unknown]
  - Coronary artery disease [Unknown]
  - Arteriosclerosis coronary artery [Unknown]
  - Hypertension [Unknown]
  - Hyperlipidaemia [Unknown]
  - Dysuria [Unknown]
  - Oedema [Unknown]
